FAERS Safety Report 6270005-7 (Version None)
Quarter: 2009Q3

REPORT INFORMATION
  Report Type: 
  Country: None (occurrence: None)
  Receive Date: 20090716
  Receipt Date: 20090707
  Transmission Date: 20100115
  Serious: Yes (Other)
  Sender: FDA-Public Use
  Company Number: DE-BAYER-200812779GPV

PATIENT
  Age: 28 Year
  Sex: Female
  Weight: 69 kg

DRUGS (4)
  1. DHEA VERSUS PLACEBO (STUDY MEDICATION NOT YET GIVEN) [Suspect]
  2. YASMIN [Suspect]
     Indication: CONTRACEPTION
     Dosage: 1 TABLET PER DAY
     Route: 048
     Dates: start: 20030101
  3. VAGI-C [Concomitant]
     Indication: CERVICITIS
     Route: 048
     Dates: start: 20080131
  4. VOLTAREN [Concomitant]
     Indication: PROCEDURAL PAIN
     Dosage: 1 TABLET PER DAY
     Route: 048
     Dates: start: 20071201

REACTIONS (1)
  - CERVIX CARCINOMA STAGE 0 [None]
